FAERS Safety Report 8227301-3 (Version None)
Quarter: 2012Q1

REPORT INFORMATION
  Report Type: 
  Country: None (occurrence: None)
  Receive Date: 20120322
  Receipt Date: 20120321
  Transmission Date: 20120608
  Serious: Yes (Death, Other)
  Sender: FDA-Public Use
  Company Number: PHHY2012CN013764

PATIENT
  Sex: Female
  Weight: 48 kg

DRUGS (3)
  1. GLEEVEC [Suspect]
     Dosage: 300 MG, QD
     Route: 048
     Dates: start: 20081014
  2. MEROPENEM [Concomitant]
     Indication: ANTI-INFECTIVE THERAPY
     Dosage: 3.0 UNK,
     Route: 042
     Dates: start: 20100328
  3. GLEEVEC [Suspect]
     Indication: CHRONIC MYELOID LEUKAEMIA
     Dosage: UNK
     Route: 048
     Dates: start: 20081024

REACTIONS (10)
  - OEDEMA [None]
  - SKIN HAEMORRHAGE [None]
  - RESPIRATORY FAILURE [None]
  - CONVULSION [None]
  - LUNG INFECTION [None]
  - LEUKAEMIC INFILTRATION BRAIN [None]
  - PANCYTOPENIA [None]
  - BLAST CRISIS IN MYELOGENOUS LEUKAEMIA [None]
  - MUCOSAL HAEMORRHAGE [None]
  - CARDIAC ARREST [None]
